FAERS Safety Report 6087494-3 (Version None)
Quarter: 2009Q1

REPORT INFORMATION
  Report Type: 
  Country: None (occurrence: None)
  Receive Date: 20090223
  Receipt Date: 20090209
  Transmission Date: 20090719
  Serious: Yes (Hospitalization, Other)
  Sender: FDA-Public Use
  Company Number: DE-ELI_LILLY_AND_COMPANY-DE200902001691

PATIENT
  Age: 63 Year
  Sex: Male

DRUGS (7)
  1. CYMBALTA [Suspect]
     Indication: DEPRESSION
     Dosage: 60 MG, DAILY (1/D)
     Route: 048
     Dates: start: 20080101
  2. CYMBALTA [Suspect]
     Dosage: 90 MG, DAILY (1/D)
     Route: 048
  3. CYMBALTA [Suspect]
     Dosage: 120 MG, DAILY (1/D)
     Route: 048
  4. CYMBALTA [Suspect]
     Dosage: 150 MG, DAILY (1/D)
     Route: 048
  5. CYMBALTA [Suspect]
     Dosage: 90 MG, DAILY (1/D)
     Route: 048
  6. ANGIOTENSIN II ANTAGONISTS [Concomitant]
     Dosage: UNK, UNKNOWN
     Route: 065
  7. BETA BLOCKING AGENTS [Concomitant]
     Dosage: UNK, UNKNOWN
     Route: 065

REACTIONS (3)
  - HOSPITALISATION [None]
  - HYPERTENSION [None]
  - INTENTIONAL OVERDOSE [None]
